FAERS Safety Report 9246237 (Version 4)
Quarter: 2014Q1

REPORT INFORMATION
  Report Type: Spontaneous
  Country: US (occurrence: US)
  Receive Date: 20130422
  Receipt Date: 20140109
  Transmission Date: 20141002
  Serious: Yes (Death, Hospitalization, Other)
  Sender: FDA-Public Use
  Company Number: US-PFIZER INC-2013121669

PATIENT
  Age: 68 Year
  Sex: Female
  Weight: 52.15 kg

DRUGS (7)
  1. REVATIO [Suspect]
     Indication: PULMONARY ARTERIAL HYPERTENSION
     Dosage: 20 MG, 3X/DAY
     Route: 048
     Dates: start: 20121027, end: 201304
  2. REVATIO [Suspect]
     Dosage: 40 MG, 3X/DAY
     Route: 048
     Dates: start: 201304
  3. LETAIRIS [Concomitant]
     Dosage: UNK
  4. CARDIZEM [Concomitant]
     Indication: HYPERTENSION
     Dosage: 240 MG, 2X/DAY
  5. VITAMIN D [Concomitant]
     Dosage: 2000 IU, UNK
  6. MAGNESIUM [Concomitant]
     Dosage: UNK
  7. COUMADIN [Concomitant]
     Dosage: UNK
     Dates: start: 201210, end: 2013

REACTIONS (5)
  - Septic shock [Fatal]
  - Pulmonary hypertension [Unknown]
  - Dyspnoea [Unknown]
  - Connective tissue disorder [Unknown]
  - Renal failure chronic [Unknown]
